FAERS Safety Report 20546434 (Version 1)
Quarter: 2022Q1

REPORT INFORMATION
  Report Type: Other
  Country: CN (occurrence: None)
  Receive Date: 20220303
  Receipt Date: 20220303
  Transmission Date: 20220423
  Serious: Yes (Hospitalization, Other)
  Sender: FDA-Public Use
  Company Number: CN-Navinta LLC-000224

PATIENT
  Age: 31 Year
  Sex: Female

DRUGS (5)
  1. INDOMETHACIN [Suspect]
     Active Substance: INDOMETHACIN
     Indication: Premature labour
     Dosage: RECTALLY 6 TIMES
     Route: 054
  2. RITODRINE [Suspect]
     Active Substance: RITODRINE
     Indication: Premature labour
     Route: 042
  3. DEXAMETHASONE [Concomitant]
     Active Substance: DEXAMETHASONE
     Indication: Respiratory distress
     Dosage: TWICE, 2 D EVERY TIME
  4. INSULIN NOS [Concomitant]
     Active Substance: INSULIN NOS
     Indication: Diabetes mellitus
     Route: 058
  5. RITODRINE [Suspect]
     Active Substance: RITODRINE
     Indication: Premature labour
     Route: 042

REACTIONS (2)
  - Toxic epidermal necrolysis [Recovered/Resolved]
  - Exposure during pregnancy [Unknown]
